FAERS Safety Report 15061279 (Version 1)
Quarter: 2018Q2

REPORT INFORMATION
  Report Type: Spontaneous
  Country: DE (occurrence: DE)
  Receive Date: 20180625
  Receipt Date: 20180625
  Transmission Date: 20180711
  Serious: Yes (Life-Threatening, Hospitalization)
  Sender: FDA-Public Use
  Company Number: DE-PFIZER INC-2018253548

PATIENT
  Age: 76 Year
  Sex: Female

DRUGS (4)
  1. SULFASALAZINE. [Suspect]
     Active Substance: SULFASALAZINE
     Indication: PSORIATIC ARTHROPATHY
     Dosage: DAILY DOSE: 1000 MG MILLGRAM(S) EVERY 2 DAYS
     Route: 048
     Dates: start: 20180301, end: 20180419
  2. APROVEL [Concomitant]
     Active Substance: IRBESARTAN
     Dosage: DAILY DOSE: 300 MG MILLGRAM(S) EVERY DAYS
     Route: 048
     Dates: start: 2011
  3. ACICLOVIR [Concomitant]
     Active Substance: ACYCLOVIR
     Dosage: DAILY DOSE: 4000 MG MILLGRAM(S) EVERY DAYS
     Route: 048
     Dates: start: 20180409, end: 20180416
  4. METFORMIN [Concomitant]
     Active Substance: METFORMIN HYDROCHLORIDE
     Dosage: DAILY DOSE: 2000 MG MILLGRAM(S) EVERY DAYS
     Route: 048
     Dates: start: 2012

REACTIONS (3)
  - Pyrexia [Unknown]
  - Product use in unapproved indication [Recovered/Resolved]
  - Agranulocytosis [Recovered/Resolved]

NARRATIVE: CASE EVENT DATE: 20180301
